FAERS Safety Report 24896320 (Version 1)
Quarter: 2025Q1

REPORT INFORMATION
  Report Type: Spontaneous
  Country: US (occurrence: US)
  Receive Date: 20250128
  Receipt Date: 20250128
  Transmission Date: 20250409
  Serious: No
  Sender: MEITHEAL PHARMACEUTICALS
  Company Number: US-MEITHEAL-2024MPSPO00366

PATIENT
  Age: 69 Year
  Sex: Female

DRUGS (6)
  1. REGADENOSON [Suspect]
     Active Substance: REGADENOSON
     Indication: Cardiac stress test
     Route: 065
     Dates: start: 20241030
  2. REGADENOSON [Suspect]
     Active Substance: REGADENOSON
  3. REGADENOSON [Suspect]
     Active Substance: REGADENOSON
  4. REGADENOSON [Suspect]
     Active Substance: REGADENOSON
  5. REGADENOSON [Suspect]
     Active Substance: REGADENOSON
  6. DEVICE [Suspect]
     Active Substance: DEVICE
     Indication: Cardiac stress test

REACTIONS (1)
  - Hypotension [Recovered/Resolved]
